FAERS Safety Report 7149252-8 (Version None)
Quarter: 2010Q4

REPORT INFORMATION
  Report Type: 
  Country: None (occurrence: None)
  Receive Date: 20101209
  Receipt Date: 20101126
  Transmission Date: 20110411
  Serious: Yes (Hospitalization)
  Sender: FDA-Public Use
  Company Number: GXKR2010SA13409

PATIENT
  Age: 5 Year
  Sex: Male

DRUGS (1)
  1. CEFTRIAXONE SODIUM [Suspect]
     Route: 042

REACTIONS (15)
  - ABDOMINAL DISTENSION [None]
  - ANAPHYLACTIC REACTION [None]
  - CHILLS [None]
  - CONVULSION [None]
  - HYPOTENSION [None]
  - LETHARGY [None]
  - MULTI-ORGAN FAILURE [None]
  - OEDEMA [None]
  - OLIGURIA [None]
  - PALLOR [None]
  - PERIORBITAL OEDEMA [None]
  - PYREXIA [None]
  - RASH [None]
  - RENAL FAILURE ACUTE [None]
  - SHOCK [None]
